FAERS Safety Report 20770184 (Version 2)
Quarter: 2022Q2

REPORT INFORMATION
  Report Type: Spontaneous
  Country: US (occurrence: None)
  Receive Date: 20220429
  Receipt Date: 20220610
  Transmission Date: 20220721
  Serious: Yes (Other)
  Sender: FDA-Public Use
  Company Number: 2022A164587

PATIENT
  Sex: Male
  Weight: 47.6 kg

DRUGS (1)
  1. SYMBICORT [Suspect]
     Active Substance: BUDESONIDE\FORMOTEROL FUMARATE DIHYDRATE
     Indication: Chronic obstructive pulmonary disease
     Dosage: 160/4.5 MCG, 2 INHALATIONS TWICE A DAY
     Route: 055
     Dates: start: 2012

REACTIONS (2)
  - Pulmonary function test decreased [Unknown]
  - Device delivery system issue [Unknown]
